FAERS Safety Report 6402616-X (Version None)
Quarter: 2009Q4

REPORT INFORMATION
  Report Type: 
  Country: None (occurrence: None)
  Receive Date: 20091009
  Receipt Date: 20091006
  Transmission Date: 20100525
  Serious: Yes (Death)
  Sender: FDA-Public Use
  Company Number: 2009SP028926

PATIENT
  Age: 78 Year
  Sex: Female
  Weight: 47 kg

DRUGS (1)
  1. MIRTAZAPINE [Suspect]

REACTIONS (2)
  - ANTIDEPRESSANT DRUG LEVEL ABOVE THERAPEUTIC [None]
  - COMPLETED SUICIDE [None]
